FAERS Safety Report 18219882 (Version 2)
Quarter: 2021Q1

REPORT INFORMATION
  Report Type: Report from Study
  Country: NL (occurrence: NL)
  Receive Date: 20200902
  Receipt Date: 20210318
  Transmission Date: 20210419
  Serious: Yes (Hospitalization)
  Sender: FDA-Public Use
  Company Number: NL-ROCHE-2665936

PATIENT
  Age: 69 Year
  Sex: Male
  Weight: 100 kg

DRUGS (2)
  1. VENETOCLAX. [Suspect]
     Active Substance: VENETOCLAX
     Indication: CHRONIC LYMPHOCYTIC LEUKAEMIA
     Dosage: CYCLE 1: 20 MG (2 TABLET AT 10 MG), DAY 22?28 EVERY 28, CYCLE 2: 50 MG (1 TABLET AT 50 MG), DAY 1?7;
     Route: 048
     Dates: start: 20190117, end: 20191127
  2. OBINUTUZUMAB. [Suspect]
     Active Substance: OBINUTUZUMAB
     Indication: CHRONIC LYMPHOCYTIC LEUKAEMIA
     Dosage: CYCLE 1: 100 MG, DAY 1; 900 MG, DAY 1(2); 1000 MG, DAY 8+15 EVERY 28 DAYS; CYCLES 2?6: 1000 MG, DAY
     Route: 042
     Dates: start: 20181227, end: 20190516

REACTIONS (2)
  - Pain in extremity [Not Recovered/Not Resolved]
  - Polymyalgia rheumatica [Not Recovered/Not Resolved]

NARRATIVE: CASE EVENT DATE: 20200715
